FAERS Safety Report 5907094-2 (Version None)
Quarter: 2008Q4

REPORT INFORMATION
  Report Type: 
  Country: None (occurrence: None)
  Receive Date: 20081002
  Receipt Date: 20081002
  Transmission Date: 20090506
  Serious: Yes (Hospitalization)
  Sender: FDA-Public Use
  Company Number: None

PATIENT
  Age: 10 Year
  Sex: Male
  Weight: 35.1 kg

DRUGS (2)
  1. CISPLATIN [Suspect]
     Indication: NASOPHARYNGEAL CANCER
     Dosage: 100 MG/M**2  CYC IV
     Route: 042
     Dates: end: 20080228
  2. MOUTHWASH [Concomitant]

REACTIONS (5)
  - BLOOD PRESSURE DECREASED [None]
  - BODY TEMPERATURE DECREASED [None]
  - FEBRILE NEUTROPENIA [None]
  - HEART RATE DECREASED [None]
  - RESPIRATORY RATE INCREASED [None]
